FAERS Safety Report 5527441-3 (Version None)
Quarter: 2007Q4

REPORT INFORMATION
  Report Type: 
  Country: None (occurrence: None)
  Receive Date: 20071123
  Receipt Date: 20071113
  Transmission Date: 20080405
  Serious: Yes (Other)
  Sender: FDA-Public Use
  Company Number: 239049K07USA

PATIENT
  Age: 41 Year
  Sex: Female
  Weight: 65.7716 kg

DRUGS (5)
  1. REBIF [Suspect]
     Indication: MULTIPLE SCLEROSIS
     Dosage: 44 MCG, 3 IN 1 WEEKS, SUBCUTANEOUS
     Route: 058
     Dates: start: 20070903, end: 20071017
  2. BACLOFEN [Concomitant]
  3. TRILEPTAL [Concomitant]
  4. LEXAPRO [Concomitant]
  5. DIASTAT [Concomitant]

REACTIONS (4)
  - CONVULSION [None]
  - HEMIPLEGIA [None]
  - THERAPEUTIC RESPONSE DECREASED [None]
  - VOMITING [None]
